FAERS Safety Report 5179558-3 (Version None)
Quarter: 2006Q4

REPORT INFORMATION
  Report Type: 
  Country: None (occurrence: None)
  Receive Date: 20061219
  Receipt Date: 20060808
  Transmission Date: 20070319
  Serious: Yes (Hospitalization)
  Sender: FDA-Public Use
  Company Number: US-BOEHRINGER INGELHEIM PHARMACEUTICALS, INC.-2006-BP-09089BP

PATIENT
  Age: 94 Year
  Sex: Male

DRUGS (3)
  1. ATROVENT [Suspect]
     Indication: RHINITIS PERENNIAL
     Route: 045
     Dates: start: 20051101
  2. ARICEPT [Concomitant]
     Indication: DEMENTIA
  3. DITROPAN [Concomitant]
     Indication: HYPERTONIC BLADDER
     Dates: start: 20051101, end: 20060301

REACTIONS (3)
  - CEREBROVASCULAR ACCIDENT [None]
  - DEHYDRATION [None]
  - DELIRIUM [None]
